FAERS Safety Report 15371600 (Version 1)
Quarter: 2018Q3

REPORT INFORMATION
  Report Type: Spontaneous
  Country: US (occurrence: US)
  Receive Date: 20180911
  Receipt Date: 20180911
  Transmission Date: 20181010
  Serious: Yes (Hospitalization)
  Sender: FDA-Public Use
  Company Number: PHHY2018US087972

PATIENT
  Age: 40 Year
  Sex: Male

DRUGS (3)
  1. IPILIMUMAB [Concomitant]
     Active Substance: IPILIMUMAB
     Indication: DESMOPLASTIC MELANOMA
     Dosage: 1 MG/KG, UNK
     Route: 041
  2. PREDNISONE. [Suspect]
     Active Substance: PREDNISONE
     Indication: CUTANEOUS VASCULITIS
     Dosage: 1 MG/KG, QD
     Route: 065
  3. PEMBROLIZUMAB. [Concomitant]
     Active Substance: PEMBROLIZUMAB
     Indication: DESMOPLASTIC MELANOMA
     Dosage: 200 MG, UNK
     Route: 041

REACTIONS (2)
  - Cellulitis [Unknown]
  - Ulcer [Recovering/Resolving]
